FAERS Safety Report 25670843 (Version 1)
Quarter: 2025Q3

REPORT INFORMATION
  Report Type: Spontaneous
  Country: EU (occurrence: EU)
  Receive Date: 20250812
  Receipt Date: 20250812
  Transmission Date: 20251020
  Serious: Yes (Other)
  Sender: AUROBINDO
  Company Number: EU-AFSSAPS-RS2025000764

PATIENT
  Age: 63 Year
  Sex: Male
  Weight: 58 kg

DRUGS (3)
  1. FUROSEMIDE [Suspect]
     Active Substance: FUROSEMIDE
     Indication: Hyponatraemia
     Route: 042
     Dates: end: 20220329
  2. VANCOMYCIN [Suspect]
     Active Substance: VANCOMYCIN
     Indication: Febrile bone marrow aplasia
     Route: 042
     Dates: start: 20220321, end: 20220330
  3. CEFEPIME [Suspect]
     Active Substance: CEFEPIME HYDROCHLORIDE
     Indication: Escherichia bacteraemia
     Route: 042
     Dates: start: 20220310, end: 20220330

REACTIONS (1)
  - Acute kidney injury [Recovered/Resolved]

NARRATIVE: CASE EVENT DATE: 20220331
